FAERS Safety Report 8384186-2 (Version None)
Quarter: 2012Q2

REPORT INFORMATION
  Report Type: 
  Country: None (occurrence: None)
  Receive Date: 20120524
  Receipt Date: 20120518
  Transmission Date: 20120825
  Serious: Yes (Hospitalization)
  Sender: FDA-Public Use
  Company Number: US-CELGENEUS-163-21880-12042825

PATIENT
  Sex: Female

DRUGS (2)
  1. DEXAMETHASONE [Concomitant]
     Dosage: 40 MILLIGRAM
     Route: 048
     Dates: start: 20120117
  2. REVLIMID [Suspect]
     Indication: MULTIPLE MYELOMA
     Dosage: 25 MILLIGRAM
     Route: 048
     Dates: start: 20120326

REACTIONS (3)
  - INFECTION [None]
  - AVULSION FRACTURE [None]
  - LOSS OF CONSCIOUSNESS [None]
